FAERS Safety Report 7294094-6 (Version None)
Quarter: 2011Q1

REPORT INFORMATION
  Report Type: 
  Country: None (occurrence: None)
  Receive Date: 20110215
  Receipt Date: 20110202
  Transmission Date: 20110831
  Serious: Yes (Other)
  Sender: FDA-Public Use
  Company Number: US-BAYER-2011-011432

PATIENT
  Age: 68 Year
  Sex: Female

DRUGS (7)
  1. NORVASC [Concomitant]
  2. ALEVE (CAPLET) [Suspect]
     Route: 048
  3. ATENOLOL [Concomitant]
  4. GARLIC OIL [ALLIUM SATIVUM] [Concomitant]
  5. GINKGO [Concomitant]
  6. LISINOPRIL [Concomitant]
  7. VITAMIN E [Concomitant]

REACTIONS (1)
  - PETECHIAE [None]
